FAERS Safety Report 13839980 (Version 2)
Quarter: 2017Q3

REPORT INFORMATION
  Report Type: Spontaneous
  Country: GB (occurrence: GB)
  Receive Date: 20170807
  Receipt Date: 20170905
  Transmission Date: 20171127
  Serious: Yes (Death)
  Sender: FDA-Public Use
  Company Number: GB-TEVA-791778ACC

PATIENT
  Age: 56 Year
  Sex: Male
  Weight: 85 kg

DRUGS (2)
  1. ERYTHROMYCIN. [Suspect]
     Active Substance: ERYTHROMYCIN
     Indication: OTITIS MEDIA ACUTE
     Route: 048
     Dates: start: 20170511, end: 20170511
  2. ALFUZOSIN [Concomitant]
     Active Substance: ALFUZOSIN

REACTIONS (2)
  - Cardio-respiratory arrest [Fatal]
  - Anaphylactic reaction [Fatal]

NARRATIVE: CASE EVENT DATE: 20170511
